FAERS Safety Report 13496544 (Version 2)
Quarter: 2017Q2

REPORT INFORMATION
  Report Type: Spontaneous
  Country: US (occurrence: US)
  Receive Date: 20170428
  Receipt Date: 20170428
  Transmission Date: 20170830
  Serious: No
  Sender: FDA-Public Use
  Company Number: US-JAZZ-2017-US-003051

PATIENT
  Sex: Female

DRUGS (6)
  1. XYREM [Suspect]
     Active Substance: SODIUM OXYBATE
     Dosage: 3.75 G, QD
     Route: 048
     Dates: start: 201702
  2. XYREM [Suspect]
     Active Substance: SODIUM OXYBATE
     Dosage: 2.25 G, QD (FOR 7 DAYS)
     Route: 048
     Dates: start: 201701, end: 201702
  3. XYREM [Suspect]
     Active Substance: SODIUM OXYBATE
     Indication: NARCOLEPSY
     Dosage: 2.5G, BID (FOR 7 DAYS)
     Route: 048
     Dates: start: 201701, end: 201702
  4. XYREM [Suspect]
     Active Substance: SODIUM OXYBATE
     Dosage: 3 G, QD (FOR 7 DAYS)
     Route: 048
     Dates: start: 201702, end: 201702
  5. XYREM [Suspect]
     Active Substance: SODIUM OXYBATE
     Dosage: 3.25 G, QD (FOR 7 DAYS)
     Route: 048
     Dates: start: 201702, end: 201702
  6. XYREM [Suspect]
     Active Substance: SODIUM OXYBATE
     Dosage: 4 G, QD
     Route: 048
     Dates: start: 201702

REACTIONS (1)
  - Stress [Not Recovered/Not Resolved]
